FAERS Safety Report 8436839-5 (Version None)
Quarter: 2012Q2

REPORT INFORMATION
  Report Type: 
  Country: None (occurrence: None)
  Receive Date: 20120614
  Receipt Date: 20120604
  Transmission Date: 20120825
  Serious: Yes (Death)
  Sender: FDA-Public Use
  Company Number: US-MYLANLABS-2011S1002376

PATIENT
  Age: 47 Year
  Sex: Female
  Weight: 48.54 kg

DRUGS (27)
  1. DIAZEPAM [Concomitant]
     Dosage: 1 TABLET EVERY 6 TO 8 HOURS AS NEEDED FOR REST
  2. BUPROPION HCL [Concomitant]
     Indication: DEPRESSION
  3. DICYCLOMINE [Concomitant]
  4. ASPIRIN [Concomitant]
  5. FUROSEMIDE [Concomitant]
  6. OXYCODONE HCL [Concomitant]
  7. ENTOCORT EC [Concomitant]
  8. AMITRIPTYLINE HCL [Concomitant]
  9. OMEPRAZOLE [Concomitant]
  10. PENTASA [Concomitant]
  11. FLUOXETINE [Concomitant]
  12. ORPHENADRINE CITRATE [Concomitant]
  13. PREMPHASE 14/14 [Concomitant]
  14. FLUTICASONE PROPIONATE [Concomitant]
  15. LEUCOVORIN CALCIUM [Concomitant]
  16. PLAVIX [Concomitant]
  17. CAFFEINE [Concomitant]
  18. METOCLOPRAMIDE [Concomitant]
  19. DETROL LA [Concomitant]
  20. ESOMEPRAZOLE [Concomitant]
  21. IBUPROFEN [Concomitant]
  22. HYDROXYCHLOROQUINE SULFATE [Concomitant]
  23. FENTANYL-100 [Suspect]
     Indication: PAIN
     Dosage: CHANGE Q2D
     Route: 062
  24. LIPITOR [Concomitant]
     Indication: BLOOD CHOLESTEROL
  25. VALTREX [Concomitant]
  26. TRIAMTERENE AND HYDROCHLOROTHIAZIDE [Concomitant]
  27. PREDNISONE TAB [Concomitant]

REACTIONS (1)
  - TOXICITY TO VARIOUS AGENTS [None]
